FAERS Safety Report 6468354-2 (Version None)
Quarter: 2009Q4

REPORT INFORMATION
  Report Type: 
  Country: None (occurrence: None)
  Receive Date: 20091203
  Receipt Date: 20081123
  Transmission Date: 20100525
  Serious: No
  Sender: FDA-Public Use
  Company Number: US-AMGEN-KDL320502

PATIENT
  Sex: Female
  Weight: 76.3 kg

DRUGS (8)
  1. ENBREL [Suspect]
     Indication: RHEUMATOID ARTHRITIS
     Route: 058
     Dates: start: 20081010
  2. METHOTREXATE [Concomitant]
     Route: 048
  3. OMEPRAZOLE [Concomitant]
     Dates: start: 20060401
  4. VERAPAMIL [Concomitant]
     Dates: start: 20080201
  5. EFFEXOR [Concomitant]
     Dates: start: 20050101
  6. LAMOTRIGINE [Concomitant]
     Dates: start: 19980101
  7. LIPITOR [Concomitant]
     Dates: start: 20080201
  8. CONJUGATED ESTROGENS [Concomitant]
     Dates: start: 19970101

REACTIONS (2)
  - EYE INFECTION [None]
  - SINUSITIS [None]
